FAERS Safety Report 15177568 (Version 2)
Quarter: 2018Q4

REPORT INFORMATION
  Report Type: Report from Study
  Country: US (occurrence: US)
  Receive Date: 20180720
  Receipt Date: 20181017
  Transmission Date: 20190204
  Serious: No
  Sender: FDA-Public Use
  Company Number: US-AMGEN-USASL2018087037

PATIENT
  Age: 56 Year
  Sex: Female
  Weight: 98.87 kg

DRUGS (1)
  1. REPATHA [Suspect]
     Active Substance: EVOLOCUMAB
     Indication: PRODUCT USED FOR UNKNOWN INDICATION
     Dosage: 140 MG, Q2WK
     Route: 058
     Dates: start: 20180510, end: 20180524

REACTIONS (10)
  - Pain [Unknown]
  - Vomiting [Unknown]
  - Abdominal pain [Unknown]
  - Syncope [Unknown]
  - Migraine [Unknown]
  - Nausea [Unknown]
  - Depressed mood [Unknown]
  - Skin reaction [Unknown]
  - Headache [Unknown]
  - Urticaria [Unknown]

NARRATIVE: CASE EVENT DATE: 201805
